FAERS Safety Report 10310667 (Version 2)
Quarter: 2014Q3

REPORT INFORMATION
  Report Type: Spontaneous
  Country: US (occurrence: US)
  Receive Date: 20140717
  Receipt Date: 20140827
  Transmission Date: 20150326
  Serious: No
  Sender: FDA-Public Use
  Company Number: US-PFIZER INC-2014195801

PATIENT
  Age: 43 Year
  Sex: Female
  Weight: 67.12 kg

DRUGS (4)
  1. LYRICA [Suspect]
     Active Substance: PREGABALIN
     Indication: FIBROMYALGIA
     Dosage: 75 MG, 2X/DAY
     Route: 048
     Dates: start: 201406, end: 20140706
  2. CELEBREX [Concomitant]
     Active Substance: CELECOXIB
     Dosage: 200 MG, DAILY
  3. TIZANIDINE [Concomitant]
     Active Substance: TIZANIDINE
     Indication: MUSCLE SPASMS
     Dosage: 4 MG, DAILY
  4. LYRICA [Suspect]
     Active Substance: PREGABALIN
     Indication: SACROILIITIS
     Dosage: 150 MG, 2X/DAY
     Route: 048
     Dates: start: 20140707

REACTIONS (3)
  - Euphoric mood [Not Recovered/Not Resolved]
  - Anxiety [Not Recovered/Not Resolved]
  - Feeling abnormal [Not Recovered/Not Resolved]

NARRATIVE: CASE EVENT DATE: 20140707
